FAERS Safety Report 6400614-3 (Version None)
Quarter: 2009Q4

REPORT INFORMATION
  Report Type: 
  Country: None (occurrence: None)
  Receive Date: 20091014
  Receipt Date: 20091002
  Transmission Date: 20100525
  Serious: Yes (Hospitalization)
  Sender: FDA-Public Use
  Company Number: PHHY2009NO42440

PATIENT
  Sex: Male
  Weight: 91 kg

DRUGS (1)
  1. ZOLEDRONIC ACID [Suspect]
     Dosage: 4 MG, UNK
     Dates: start: 20090915

REACTIONS (2)
  - HYPOCALCAEMIA [None]
  - PROSTATE CANCER [None]
